FAERS Safety Report 5984714-8 (Version None)
Quarter: 2008Q4

REPORT INFORMATION
  Report Type: 
  Country: None (occurrence: None)
  Receive Date: 20081202
  Receipt Date: 20081118
  Transmission Date: 20090506
  Serious: Yes (Hospitalization)
  Sender: FDA-Public Use
  Company Number: 230023K08GBR

PATIENT
  Sex: Female

DRUGS (5)
  1. REBIF [Suspect]
     Dosage: 22 MCG, 3 IN 1 WEEKS, SUBCUTANEOUS
     Route: 058
     Dates: start: 20070927
  2. OXCARBAZEPINE [Concomitant]
  3. PHENYTOIN (PHENYTOIN /00017401/) [Concomitant]
  4. INDOMETHACIN [Concomitant]
  5. BACLOFEN [Concomitant]

REACTIONS (2)
  - CONDITION AGGRAVATED [None]
  - TRIGEMINAL NEURALGIA [None]
